FAERS Safety Report 14981903 (Version 1)
Quarter: 2018Q2

REPORT INFORMATION
  Report Type: Report from Study
  Country: IT (occurrence: IT)
  Receive Date: 20180607
  Receipt Date: 20180607
  Transmission Date: 20180711
  Serious: Yes (Other)
  Sender: FDA-Public Use
  Company Number: IT-ROCHE-2129550

PATIENT

DRUGS (4)
  1. CISPLATIN. [Suspect]
     Active Substance: CISPLATIN
     Indication: ADENOCARCINOMA PANCREAS
     Route: 042
  2. GEMCITABINE [Suspect]
     Active Substance: GEMCITABINE\GEMCITABINE HYDROCHLORIDE
     Indication: ADENOCARCINOMA PANCREAS
     Dosage: ON DAYS 1 AND 15 EVERY 4 WEEKS
     Route: 042
  3. CAPECITABINE. [Suspect]
     Active Substance: CAPECITABINE
     Indication: ADENOCARCINOMA PANCREAS
     Dosage: ON DAYS 1-28
     Route: 048
  4. EPIRUBICIN [Suspect]
     Active Substance: EPIRUBICIN
     Indication: ADENOCARCINOMA PANCREAS
     Route: 042

REACTIONS (10)
  - Thrombocytopenia [Unknown]
  - Abdominal pain [Unknown]
  - Vomiting [Unknown]
  - Fatigue [Unknown]
  - Anaemia [Unknown]
  - Neutropenia [Unknown]
  - Febrile neutropenia [Unknown]
  - Palmar-plantar erythrodysaesthesia syndrome [Unknown]
  - Embolism venous [Unknown]
  - Fracture [Unknown]
